FAERS Safety Report 25361418 (Version 2)
Quarter: 2025Q2

REPORT INFORMATION
  Report Type: Spontaneous
  Country: US (occurrence: US)
  Receive Date: 20250527
  Receipt Date: 20250626
  Transmission Date: 20250717
  Serious: No
  Sender: AMGEN
  Company Number: US-AMGEN-USASP2025103553

PATIENT
  Age: 57 Year
  Sex: Female

DRUGS (15)
  1. OTEZLA [Suspect]
     Active Substance: APREMILAST
     Indication: Psoriasis
     Dosage: 30 MILLIGRAM, BID
     Route: 048
     Dates: start: 20250501
  2. ANASTROZOLE [Concomitant]
     Active Substance: ANASTROZOLE
  3. ARMOUR THYROID [Concomitant]
     Active Substance: THYROID, PORCINE
  4. AZITHROMYCIN [Concomitant]
     Active Substance: AZITHROMYCIN
  5. DEPO-MEDROL [Concomitant]
     Active Substance: METHYLPREDNISOLONE ACETATE
  6. DICLOFENAC [Concomitant]
     Active Substance: DICLOFENAC
  7. DUPIXENT [Concomitant]
     Active Substance: DUPILUMAB
  8. OXYCODONE [Concomitant]
     Active Substance: OXYCODONE
  9. PFIZER-BIONTECH COVID-19 VACCINE [Concomitant]
     Active Substance: TOZINAMERAN
  10. TASIGNA [Concomitant]
     Active Substance: NILOTINIB
  11. TOBRAMYCIN [Concomitant]
     Active Substance: TOBRAMYCIN
  12. TRIAMTERENE AND HYDROCHLOROTHIAZIDE [Concomitant]
     Active Substance: HYDROCHLOROTHIAZIDE\TRIAMTERENE
  13. FLUCONAZOLE [Concomitant]
     Active Substance: FLUCONAZOLE
  14. FLUOXETINE [Concomitant]
     Active Substance: FLUOXETINE HYDROCHLORIDE
  15. NILOTINIB [Concomitant]
     Active Substance: NILOTINIB

REACTIONS (2)
  - Sleep disorder due to a general medical condition [Unknown]
  - Diarrhoea [Unknown]

NARRATIVE: CASE EVENT DATE: 20250501
